FAERS Safety Report 8363772-X (Version None)
Quarter: 2012Q1

REPORT INFORMATION
  Report Type: 
  Country: None (occurrence: None)
  Receive Date: 20120323
  Receipt Date: 20111214
  Transmission Date: 20120608
  Serious: Yes (Other)
  Sender: FDA-Public Use
  Company Number: 163-21880-11113270

PATIENT
  Age: 78 Year
  Sex: Male
  Weight: 104.3273 kg

DRUGS (14)
  1. POTASSIUM CHLORIDE [Concomitant]
  2. ASPIRIN [Concomitant]
  3. CYMBALTA [Concomitant]
  4. LISINOPRIL [Concomitant]
  5. REVLIMID [Suspect]
     Indication: MYELODYSPLASTIC SYNDROME
     Dosage: 10 MG, 1 IN 1 D, PO
     Route: 048
     Dates: start: 20110829, end: 20110906
  6. SIMVASTATIN [Concomitant]
  7. ALLOPURINOL [Concomitant]
  8. HYDRALAZINE HCL [Concomitant]
  9. DIAZEPAM [Concomitant]
  10. RANITIDINE HYDROCHLORIDE [Concomitant]
  11. SUCRAFATE (SUCRALFATE) [Concomitant]
  12. SYMBICORT (SYMBICORT TURBUHALER ^DRACO^) [Concomitant]
  13. VENTOLIN [Concomitant]
  14. FUROSEMIDE [Concomitant]

REACTIONS (1)
  - NEUTROPENIA [None]
